FAERS Safety Report 7734536-2 (Version None)
Quarter: 2011Q3

REPORT INFORMATION
  Report Type: 
  Country: None (occurrence: None)
  Receive Date: 20110907
  Receipt Date: 20110830
  Transmission Date: 20111222
  Serious: Yes (Other)
  Sender: FDA-Public Use
  Company Number: US-GLAXOSMITHKLINE-A0942865A

PATIENT
  Age: 45 Year
  Sex: Female

DRUGS (3)
  1. ADVAIR DISKUS 100/50 [Suspect]
     Route: 055
  2. ADVAIR DISKUS 100/50 [Suspect]
     Indication: ASTHMA
     Route: 055
  3. OMEPRAZOLE [Concomitant]

REACTIONS (7)
  - IMMUNE SYSTEM DISORDER [None]
  - OSTEOPENIA [None]
  - MALAISE [None]
  - ASTHMA [None]
  - HERPES ZOSTER [None]
  - INFLUENZA [None]
  - MUSCLE SPASMS [None]
